FAERS Safety Report 24451372 (Version 1)
Quarter: 2024Q4

REPORT INFORMATION
  Report Type: Spontaneous
  Country: SK (occurrence: SK)
  Receive Date: 20241017
  Receipt Date: 20241017
  Transmission Date: 20250114
  Serious: Yes (Hospitalization)
  Sender: ELI LILLY AND COMPANY
  Company Number: SK-ELI_LILLY_AND_COMPANY-SK202410006951

PATIENT
  Age: 80 Year
  Sex: Female

DRUGS (2)
  1. ABEMACICLIB [Suspect]
     Active Substance: ABEMACICLIB
     Indication: Breast cancer metastatic
     Dosage: 150 MG, BID
     Route: 048
     Dates: start: 20240426
  2. ABEMACICLIB [Suspect]
     Active Substance: ABEMACICLIB
     Dosage: 100 MG, BID
     Route: 048
     Dates: end: 20240621

REACTIONS (1)
  - Colitis [Recovered/Resolved]
